FAERS Safety Report 13035126 (Version 1)
Quarter: 2016Q4

REPORT INFORMATION
  Report Type: Report from Study
  Country: CA (occurrence: CA)
  Receive Date: 20161216
  Receipt Date: 20161216
  Transmission Date: 20170207
  Serious: Yes (Hospitalization, Other)
  Sender: FDA-Public Use
  Company Number: CA-PFIZER INC-2016574775

PATIENT
  Age: 80 Year
  Sex: Female
  Weight: 53.1 kg

DRUGS (8)
  1. LYRICA [Suspect]
     Active Substance: PREGABALIN
     Indication: PAIN
     Dosage: 25 MG, 1X/DAY (QHS)
     Route: 048
     Dates: start: 20160301, end: 20161014
  2. ATORVASTATIN [Concomitant]
     Active Substance: ATORVASTATIN
     Dosage: UNK
  3. METOPROLOL. [Concomitant]
     Active Substance: METOPROLOL
     Dosage: UNK
  4. TOVIAZ [Suspect]
     Active Substance: FESOTERODINE FUMARATE
     Indication: HYPERTONIC BLADDER
     Dosage: 4 MG, UNK (QH)
     Route: 048
     Dates: start: 20160121
  5. AAS [Concomitant]
     Active Substance: ASPIRIN
     Dosage: UNK
  6. PROLIA [Suspect]
     Active Substance: DENOSUMAB
     Dosage: UNK
     Dates: start: 20160819
  7. PANTOPRAZOLE [Concomitant]
     Active Substance: PANTOPRAZOLE SODIUM
  8. PROLIA [Suspect]
     Active Substance: DENOSUMAB
     Indication: MENOPAUSAL SYMPTOMS
     Dosage: UNK (ONCE EVERY SIX MONTHS)
     Dates: start: 20110816

REACTIONS (4)
  - Confusional state [Recovered/Resolved]
  - Fall [Unknown]
  - Loss of consciousness [Recovering/Resolving]
  - Amnesia [Recovering/Resolving]

NARRATIVE: CASE EVENT DATE: 201602
